FAERS Safety Report 6581635-7 (Version None)
Quarter: 2010Q1

REPORT INFORMATION
  Report Type: 
  Country: None (occurrence: None)
  Receive Date: 20100211
  Receipt Date: 20100211
  Transmission Date: 20100710
  Serious: Yes (Life-Threatening, Disabling)
  Sender: FDA-Public Use
  Company Number: None

PATIENT
  Age: 61 Year
  Sex: Male
  Weight: 99.7913 kg

DRUGS (2)
  1. CITALOPRAM HYDROBROMIDE [Suspect]
     Indication: DEPRESSION
     Dosage: 40 MG Q DAY PO
     Route: 048
     Dates: start: 20100115, end: 20100206
  2. CELEXA [Suspect]

REACTIONS (5)
  - ANTIDEPRESSANT DRUG LEVEL BELOW THERAPEUTIC [None]
  - DEPRESSION [None]
  - PRODUCT COUNTERFEIT [None]
  - PRODUCT SUBSTITUTION ISSUE [None]
  - SUICIDAL IDEATION [None]
